FAERS Safety Report 14315976 (Version 5)
Quarter: 2018Q3

REPORT INFORMATION
  Report Type: Spontaneous
  Country: GB (occurrence: GB)
  Receive Date: 20171221
  Receipt Date: 20180711
  Transmission Date: 20181010
  Serious: Yes (Disabling, Other)
  Sender: FDA-Public Use
  Company Number: GB-MYLANLABS-2017M1080255

PATIENT
  Age: 83 Year
  Sex: Female

DRUGS (33)
  1. METRONIDAZOLE. [Suspect]
     Active Substance: METRONIDAZOLE
     Indication: SEPSIS
  2. PREDNISOLONE. [Concomitant]
     Active Substance: PREDNISOLONE
     Indication: PRODUCT USED FOR UNKNOWN INDICATION
     Dosage: 5 MG, QD
     Route: 065
     Dates: start: 20170523
  3. FLECAINIDE [Concomitant]
     Active Substance: FLECAINIDE
     Indication: POLYMYALGIA RHEUMATICA
  4. METRONIDAZOLE. [Suspect]
     Active Substance: METRONIDAZOLE
     Indication: DIVERTICULITIS
  5. LANSOPRAZOLE. [Concomitant]
     Active Substance: LANSOPRAZOLE
     Indication: PRODUCT USED FOR UNKNOWN INDICATION
     Dosage: 30 MG, QD
     Route: 065
     Dates: start: 20140429
  6. RIVAROXABAN [Concomitant]
     Active Substance: RIVAROXABAN
     Indication: TRANSIENT ISCHAEMIC ATTACK
     Dosage: 15 MG, QD
     Route: 065
     Dates: start: 20160607
  7. FENTANYL. [Concomitant]
     Active Substance: FENTANYL
     Indication: PRODUCT USED FOR UNKNOWN INDICATION
     Dosage: 12 G, 1 HOUR
     Route: 062
     Dates: start: 20160413
  8. BISOPROLOL [Concomitant]
     Active Substance: BISOPROLOL
     Indication: POLYMYALGIA RHEUMATICA
     Dosage: 2.5 MG, QD
     Route: 065
     Dates: start: 20090612
  9. ONDANSETRON [Concomitant]
     Active Substance: ONDANSETRON
     Indication: PRODUCT USED FOR UNKNOWN INDICATION
     Dosage: ONE TABLET, 4MG, THREE TIMES DAILY WHEN REQUIRED
     Route: 065
  10. ASPIRIN                            /00002701/ [Concomitant]
     Active Substance: ASPIRIN
     Indication: DIVERTICULITIS
     Dosage: 75 MG, QD
     Route: 065
     Dates: start: 20131030
  11. METRONIDAZOLE. [Suspect]
     Active Substance: METRONIDAZOLE
     Indication: SEPSIS
     Dosage: 1200 MG, QD
     Route: 065
     Dates: start: 201704
  12. METRONIDAZOLE. [Suspect]
     Active Substance: METRONIDAZOLE
     Dosage: 1200 MG, QD
     Route: 065
     Dates: start: 201708
  13. METRONIDAZOLE. [Suspect]
     Active Substance: METRONIDAZOLE
     Indication: DIVERTICULITIS
  14. RIVAROXABAN [Concomitant]
     Active Substance: RIVAROXABAN
     Indication: ATRIAL FLUTTER
     Dosage: 4 MG, TID
  15. RIVAROXABAN [Concomitant]
     Active Substance: RIVAROXABAN
     Indication: INTERNATIONAL NORMALISED RATIO
  16. FLECAINIDE [Concomitant]
     Active Substance: FLECAINIDE
     Indication: POLYMYALGIA RHEUMATICA
  17. ASPIRIN                            /00002701/ [Concomitant]
     Active Substance: ASPIRIN
     Indication: TYPE 2 DIABETES MELLITUS
  18. ASPIRIN                            /00002701/ [Concomitant]
     Active Substance: ASPIRIN
     Indication: DIVERTICULITIS
     Route: 065
     Dates: start: 20131030
  19. METRONIDAZOLE. [Suspect]
     Active Substance: METRONIDAZOLE
     Dosage: 1200 MG, QD
     Route: 065
     Dates: start: 201706
  20. METRONIDAZOLE. [Suspect]
     Active Substance: METRONIDAZOLE
     Dosage: 1200 MG, QD
     Dates: start: 20170401
  21. FERROUS SULFATE. [Concomitant]
     Active Substance: FERROUS SULFATE
     Dosage: 200 MG, QD
     Dates: start: 20161021
  22. NITROFURANTOIN SODIUM. [Suspect]
     Active Substance: NITROFURANTOIN SODIUM
     Indication: PRODUCT USED FOR UNKNOWN INDICATION
     Dosage: UNK
     Route: 065
  23. LEVOTHYROXINE SODIUM. [Concomitant]
     Active Substance: LEVOTHYROXINE SODIUM
     Indication: HYPOTHYROIDISM
     Dosage: 100 ?G, QD
     Route: 065
     Dates: start: 20040824
  24. ASPIRIN                            /00002701/ [Concomitant]
     Active Substance: ASPIRIN
     Indication: TYPE 2 DIABETES MELLITUS
  25. ONDANSETRON [Concomitant]
     Active Substance: ONDANSETRON
     Dosage: 12 MG, UNK
     Dates: start: 20161017
  26. PREDNISOLONE. [Concomitant]
     Active Substance: PREDNISOLONE
     Indication: PRODUCT USED FOR UNKNOWN INDICATION
     Dosage: 1 MG, QD
     Route: 065
     Dates: start: 20060726
  27. METRONIDAZOLE. [Suspect]
     Active Substance: METRONIDAZOLE
     Dosage: 1200 MD QD
     Dates: start: 20170801
  28. FERROUS SULFATE. [Concomitant]
     Active Substance: FERROUS SULFATE
     Indication: ANAEMIA
     Dosage: 400 MG, QD
     Route: 065
     Dates: start: 20161021
  29. FLECAINIDE [Concomitant]
     Active Substance: FLECAINIDE
     Indication: ATRIAL FIBRILLATION
     Dosage: 50 MG TABLETS, HALF TWICE DAILY
     Route: 065
     Dates: start: 20090521
  30. CALCIUM CARBONATE W/COLECALCIFEROL [Concomitant]
     Active Substance: CALCIUM CARBONATE\CHOLECALCIFEROL
     Indication: POLYMYALGIA RHEUMATICA
     Dosage: 1 DF, QD, COLECALCIFEROL 400 UNIT/CALCIUM CARBONATE 1.25G CHEWABLE TABLETS
     Route: 065
     Dates: start: 20161124
  31. METRONIDAZOLE. [Suspect]
     Active Substance: METRONIDAZOLE
     Indication: DIVERTICULITIS
     Dosage: 1200 MG, QD
     Route: 065
     Dates: start: 20170222
  32. METRONIDAZOLE. [Suspect]
     Active Substance: METRONIDAZOLE
     Dosage: 1200 UNK, UNK
     Dates: start: 20170601
  33. METRONIDAZOLE. [Suspect]
     Active Substance: METRONIDAZOLE
     Indication: SEPSIS
     Dosage: 1200 MG, QD
     Route: 065

REACTIONS (5)
  - Hypoaesthesia [Not Recovered/Not Resolved]
  - Gait disturbance [Not Recovered/Not Resolved]
  - Peripheral sensorimotor neuropathy [Not Recovered/Not Resolved]
  - Paraesthesia [Not Recovered/Not Resolved]
  - Fine motor skill dysfunction [Not Recovered/Not Resolved]

NARRATIVE: CASE EVENT DATE: 2017
